FAERS Safety Report 4998632-5 (Version None)
Quarter: 2006Q2

REPORT INFORMATION
  Report Type: 
  Country: None (occurrence: None)
  Receive Date: 20060508
  Receipt Date: 20060418
  Transmission Date: 20061013
  Serious: Yes (Life-Threatening)
  Sender: FDA-Public Use
  Company Number: 13940

PATIENT
  Age: 44 Year
  Sex: Female

DRUGS (4)
  1. ANZATAX [Suspect]
     Indication: VULVAL CANCER
     Dosage: 250 MG IV
     Route: 042
     Dates: start: 20060410, end: 20060410
  2. CIMETIDINE [Concomitant]
  3. HYDROCORTISONE [Concomitant]
  4. CHLORPHENIRAMINE MALEATE [Concomitant]

REACTIONS (3)
  - CHOKING SENSATION [None]
  - DYSPNOEA [None]
  - ERYTHEMA [None]
